FAERS Safety Report 7383380-7 (Version None)
Quarter: 2011Q1

REPORT INFORMATION
  Report Type: 
  Country: None (occurrence: None)
  Receive Date: 20110330
  Receipt Date: 20110214
  Transmission Date: 20110831
  Serious: Yes (Other)
  Sender: FDA-Public Use
  Company Number: US-BAYER-201034814NA

PATIENT
  Sex: Female

DRUGS (3)
  1. ZOLOFT [Concomitant]
     Dosage: 100 MG, UNK
  2. YASMIN [Suspect]
     Indication: CONTRACEPTION
     Route: 048
     Dates: start: 20070401, end: 20070701
  3. NEXIUM [Concomitant]
     Indication: ABDOMINAL PAIN
     Dosage: UNK
     Dates: start: 20050609

REACTIONS (2)
  - DEEP VEIN THROMBOSIS [None]
  - PAIN [None]
